FAERS Safety Report 7294023-5 (Version None)
Quarter: 2011Q1

REPORT INFORMATION
  Report Type: 
  Country: None (occurrence: None)
  Receive Date: 20110215
  Receipt Date: 20110207
  Transmission Date: 20110831
  Serious: Yes (Hospitalization)
  Sender: FDA-Public Use
  Company Number: US-JNJFOC-20110203350

PATIENT
  Sex: Female
  Weight: 10.9 kg

DRUGS (9)
  1. LEUKINE [Concomitant]
  2. ANTIBIOTICS [Concomitant]
  3. IRON [Concomitant]
  4. ALBUTEROL [Concomitant]
  5. LEUKINE [Concomitant]
  6. ACETAMINOPHEN [Concomitant]
  7. MUPIROCIN [Concomitant]
  8. INFLIXIMAB, RECOMBINANT [Suspect]
     Indication: INFLAMMATORY BOWEL DISEASE
     Route: 042
  9. PREVACID [Concomitant]

REACTIONS (2)
  - TACHYPNOEA [None]
  - ENTEROBACTER INFECTION [None]
